FAERS Safety Report 13961955 (Version 2)
Quarter: 2017Q3

REPORT INFORMATION
  Report Type: Report from Study
  Country: CO (occurrence: CO)
  Receive Date: 20170912
  Receipt Date: 20170919
  Transmission Date: 20171128
  Serious: Yes (Other)
  Sender: FDA-Public Use
  Company Number: PHHY2017CO126665

PATIENT
  Sex: Female
  Weight: 58 kg

DRUGS (3)
  1. MONTELUKAST SODIUM. [Suspect]
     Active Substance: MONTELUKAST SODIUM
     Indication: HYPERSENSITIVITY
     Route: 065
  2. XOLAIR [Suspect]
     Active Substance: OMALIZUMAB
     Indication: ASTHMA
     Dosage: 450 MG, BIW
     Route: 058
     Dates: start: 20161128
  3. NOXPIRIN [Concomitant]
     Indication: INFLUENZA
     Route: 065

REACTIONS (5)
  - Endometriosis [Unknown]
  - Oropharyngeal pain [Unknown]
  - Malaise [Unknown]
  - Influenza [Recovered/Resolved]
  - Dysphagia [Unknown]
